FAERS Safety Report 5802421-9 (Version None)
Quarter: 2008Q3

REPORT INFORMATION
  Report Type: 
  Country: None (occurrence: None)
  Receive Date: 20080707
  Receipt Date: 20080701
  Transmission Date: 20090109
  Serious: Yes (Disabling)
  Sender: FDA-Public Use
  Company Number: PHHO2008GB08161

PATIENT
  Weight: 86 kg

DRUGS (1)
  1. ZOLEDRONIC ACID [Suspect]
     Dosage: 4MG
     Route: 042
     Dates: start: 20050720

REACTIONS (4)
  - IMPAIRED HEALING [None]
  - OSTEONECROSIS [None]
  - PAIN [None]
  - TOOTH EXTRACTION [None]
